FAERS Safety Report 21382975 (Version 1)
Quarter: 2022Q3

REPORT INFORMATION
  Report Type: Spontaneous
  Country: US (occurrence: US)
  Receive Date: 20220927
  Receipt Date: 20220927
  Transmission Date: 20221026
  Serious: No
  Sender: FDA-Public Use
  Company Number: US-SANOFI-01286373

PATIENT
  Age: 70 Year
  Sex: Female

DRUGS (1)
  1. DUPIXENT [Suspect]
     Active Substance: DUPILUMAB
     Indication: Asthma
     Dosage: 200 MG QOW
     Dates: start: 20210120

REACTIONS (3)
  - Dermatitis contact [Unknown]
  - Rash pruritic [Unknown]
  - Rash vesicular [Unknown]

NARRATIVE: CASE EVENT DATE: 20210701
